FAERS Safety Report 15701089 (Version 4)
Quarter: 2019Q2

REPORT INFORMATION
  Report Type: Spontaneous
  Country: US (occurrence: US)
  Receive Date: 20181207
  Receipt Date: 20190415
  Transmission Date: 20190711
  Serious: Yes (Hospitalization, Other)
  Sender: FDA-Public Use
  Company Number: US-SAKK-2018SA332438AA

PATIENT
  Age: 67 Year
  Sex: Female

DRUGS (1)
  1. DUPIXENT [Suspect]
     Active Substance: DUPILUMAB
     Indication: DERMATITIS ATOPIC
     Dosage: 300 MG, QOW
     Route: 058
     Dates: start: 20181030

REACTIONS (9)
  - Cataract [Unknown]
  - Coma [Unknown]
  - Dyspnoea [Unknown]
  - Feeling abnormal [Unknown]
  - Fall [Unknown]
  - Drug hypersensitivity [Unknown]
  - Fatigue [Unknown]
  - Syncope [Unknown]
  - Oxygen saturation decreased [Unknown]

NARRATIVE: CASE EVENT DATE: 20180412
